FAERS Safety Report 8409880-6 (Version None)
Quarter: 2012Q2

REPORT INFORMATION
  Report Type: 
  Country: None (occurrence: None)
  Receive Date: 20120605
  Receipt Date: 20120531
  Transmission Date: 20120825
  Serious: No
  Sender: FDA-Public Use
  Company Number: US-PFIZER INC-2012132267

PATIENT
  Sex: Male
  Weight: 135 kg

DRUGS (21)
  1. ASCORBIC ACID [Concomitant]
     Dosage: 500 MG, DAILY
  2. CHANTIX [Suspect]
     Dosage: UNK
     Route: 048
     Dates: start: 20110101
  3. METFORMIN [Concomitant]
     Indication: TYPE 2 DIABETES MELLITUS
     Dosage: 350 MG, 2X/DAY
  4. NITROGLYCERIN [Concomitant]
     Indication: CARDIOVASCULAR EVENT PROPHYLAXIS
     Dosage: 0.4 MG, AS NEEDED
     Route: 060
  5. VENTOLIN HFA [Concomitant]
     Indication: DYSPNOEA
     Dosage: TWO PUFFS, EVERY 6 HOURS
  6. ASPIRIN [Concomitant]
     Dosage: 325 MG, DAILY
  7. FLONASE [Concomitant]
     Indication: DRY MOUTH
     Dosage: TWO SPRAYS AT NIGHT
  8. CHANTIX [Suspect]
     Indication: SMOKING CESSATION THERAPY
     Dosage: 0.5 MG, DAILY
     Route: 048
     Dates: start: 20110201
  9. INSULIN [Concomitant]
     Indication: TYPE 2 DIABETES MELLITUS
     Dosage: UNK, DAILY AT NIGHT
  10. CRESTOR [Concomitant]
     Dosage: UNK
  11. NORVASC [Concomitant]
     Dosage: 5 MG, DAILY
  12. FISH OIL [Concomitant]
     Dosage: 1000 MG, DAILY
  13. KLONOPIN [Concomitant]
     Dosage: 0.5 MG, 4X/DAY
  14. JANUVIA [Concomitant]
     Dosage: UNK
  15. PLAVIX [Concomitant]
     Dosage: 75 MG, DAILY AT NIGHT
  16. CYMBALTA [Concomitant]
     Dosage: 90 MG, DAILY
  17. LIRAGLUTIDE [Concomitant]
     Indication: TYPE 2 DIABETES MELLITUS
     Dosage: 18 MG, DAILY
  18. INSULIN GLARGINE [Concomitant]
     Indication: TYPE 2 DIABETES MELLITUS
     Dosage: 10 IU, DAILY
  19. SYMBICORT [Concomitant]
     Indication: LUNG DISORDER
     Dosage: ONE PUFF IN THE MORNING
  20. VITAMIN D [Concomitant]
     Indication: VITAMIN D DEFICIENCY
     Dosage: UNK
  21. SYNTHROID [Concomitant]
     Indication: HYPOTHYROIDISM
     Dosage: 150 UG, DAILY BEFORE BREAKFAST

REACTIONS (1)
  - ABNORMAL DREAMS [None]
